FAERS Safety Report 4788107-0 (Version None)
Quarter: 2005Q3

REPORT INFORMATION
  Report Type: 
  Country: None (occurrence: None)
  Receive Date: 20050920
  Receipt Date: 20040930
  Transmission Date: 20060218
  Serious: Yes (Hospitalization)
  Sender: FDA-Public Use
  Company Number: PHEH2004US08535

PATIENT
  Age: 77 Year
  Sex: Female
  Weight: 81.2 kg

DRUGS (6)
  1. FEMARA [Suspect]
     Indication: BREAST CANCER
     Dosage: 2.5 MG, QD; 2.5 MG, BID
     Dates: start: 20040801, end: 20040801
  2. FEMARA [Suspect]
     Indication: BREAST CANCER
     Dosage: 2.5 MG, QD; 2.5 MG, BID
     Dates: start: 20040610
  3. CALCIUM (CALCIUM GLUCONATE, CALCIUM SACCHARATE) [Concomitant]
  4. VITAMIN C (ASCORBIC ACID) [Concomitant]
  5. MULTIVITAMINS (ASCORBIC ACID, ERGOCALCIFEROL, FOLIC ACID, NICOTINAMIDE [Concomitant]
  6. ACETYLSALICYLIC ACID SRT [Concomitant]

REACTIONS (6)
  - ABDOMINAL DISTENSION [None]
  - ABDOMINAL TENDERNESS [None]
  - ACCIDENTAL OVERDOSE [None]
  - CONFUSIONAL STATE [None]
  - VAGINAL HAEMORRHAGE [None]
  - VAGINAL OPERATION [None]
